FAERS Safety Report 7681447-7 (Version None)
Quarter: 2011Q3

REPORT INFORMATION
  Report Type: 
  Country: None (occurrence: None)
  Receive Date: 20110812
  Receipt Date: 20110805
  Transmission Date: 20111222
  Serious: Yes (Other)
  Sender: FDA-Public Use
  Company Number: US-US-EMD SERONO, INC.-7073905

PATIENT
  Sex: Female
  Weight: 52 kg

DRUGS (2)
  1. GENOTROPIN [Concomitant]
     Dates: start: 20110726
  2. REBIF [Suspect]
     Indication: MULTIPLE SCLEROSIS
     Route: 058
     Dates: start: 20050511

REACTIONS (6)
  - MEMORY IMPAIRMENT [None]
  - INJECTION SITE DISCOLOURATION [None]
  - INJECTION SITE ERYTHEMA [None]
  - ANXIETY [None]
  - SYNCOPE [None]
  - TREMOR [None]
